FAERS Safety Report 20671798 (Version 1)
Quarter: 2022Q2

REPORT INFORMATION
  Report Type: Spontaneous
  Country: US (occurrence: US)
  Receive Date: 20220405
  Receipt Date: 20220405
  Transmission Date: 20220721
  Serious: No
  Sender: FDA-Public Use
  Company Number: US-BoehringerIngelheim-2022-BI-162887

PATIENT
  Age: 72 Year
  Sex: Male

DRUGS (2)
  1. OFEV [Suspect]
     Active Substance: NINTEDANIB
     Indication: Fibrosis
     Dates: start: 202108
  2. OFEV [Suspect]
     Active Substance: NINTEDANIB
     Indication: Emphysema

REACTIONS (2)
  - Oxygen saturation decreased [Unknown]
  - Joint injury [Unknown]
